FAERS Safety Report 6294185-2 (Version None)
Quarter: 2009Q3

REPORT INFORMATION
  Report Type: 
  Country: None (occurrence: None)
  Receive Date: 20090803
  Receipt Date: 20090206
  Transmission Date: 20100115
  Serious: No
  Sender: FDA-Public Use
  Company Number: A0767309A

PATIENT
  Age: 28 Year
  Sex: Male

DRUGS (1)
  1. NICORETTE [Suspect]
     Dates: start: 20090203, end: 20090205

REACTIONS (4)
  - GINGIVAL ERYTHEMA [None]
  - GINGIVAL PAIN [None]
  - HYPERSENSITIVITY [None]
  - ORAL MUCOSAL ERUPTION [None]
